FAERS Safety Report 4374886-3 (Version None)
Quarter: 2004Q2

REPORT INFORMATION
  Report Type: 
  Country: None (occurrence: None)
  Receive Date: 20040604
  Receipt Date: 20040527
  Transmission Date: 20050107
  Serious: Yes (Life-Threatening)
  Sender: FDA-Public Use
  Company Number: 2004213940FR

PATIENT
  Age: 54 Year
  Sex: Male
  Weight: 80 kg

DRUGS (5)
  1. SOLU-MEDROL [Suspect]
     Dosage: 120 MG, IV
     Route: 042
     Dates: start: 20040331, end: 20040331
  2. EPINEPHRINE [Suspect]
     Dosage: 0.1 MG, TID, IV
     Route: 042
     Dates: start: 20040331, end: 20040331
  3. BENZALKONIUM CHLORIDE (BENZALKONIUM CHLORIDE) [Suspect]
     Dosage: NASAL
     Route: 045
     Dates: start: 20040331, end: 20040331
  4. AMOXICILLIN TRIHYDRATE [Concomitant]
     Dosage: 500 MG, QD, ORAL
     Route: 048
     Dates: start: 20040331, end: 20040331
  5. CARTEOLOL (CARTEOLOL) [Concomitant]

REACTIONS (7)
  - ANAPHYLACTIC SHOCK [None]
  - CIRCULATORY COLLAPSE [None]
  - CORONARY ARTERY ATHEROSCLEROSIS [None]
  - CORONARY ARTERY THROMBOSIS [None]
  - HYPOTENSION [None]
  - INTRACARDIAC THROMBUS [None]
  - MYOCARDIAL INFARCTION [None]
